FAERS Safety Report 13613358 (Version 1)
Quarter: 2017Q2

REPORT INFORMATION
  Report Type: Spontaneous
  Country: NO (occurrence: NO)
  Receive Date: 20170605
  Receipt Date: 20170605
  Transmission Date: 20170830
  Serious: Yes (Hospitalization)
  Sender: FDA-Public Use
  Company Number: NO-TEVA-775707ACC

PATIENT
  Age: 49 Year
  Sex: Male

DRUGS (13)
  1. DEXAMETASON [Concomitant]
     Active Substance: DEXAMETHASONE
     Indication: PLASMA CELL MYELOMA
     Dosage: (GIVEN ONCE A WEEK FOR 4 WEEKS WITH EACH COURSE OF REVLIMID)
     Route: 048
     Dates: start: 20161205
  2. NEBIDO [Concomitant]
     Active Substance: TESTOSTERONE UNDECANOATE
     Indication: HYPOGONADISM
     Dosage: .1429 GRAM DAILY;
     Route: 030
     Dates: start: 20170308
  3. ALBYL-E [Concomitant]
     Active Substance: ASPIRIN\MAGNESIUM OXIDE
     Indication: THROMBOSIS PROPHYLAXIS
     Dosage: 75 MILLIGRAM DAILY;
     Route: 048
     Dates: start: 20161205, end: 20170306
  4. REVLIMID [Concomitant]
     Active Substance: LENALIDOMIDE
     Indication: PLASMA CELL MYELOMA
     Dosage: 25 MILLIGRAM DAILY; (GIVEN AS COURSES OF 3 WEEKS APPROXIMATELY EVERY MONTH)
     Route: 048
     Dates: start: 20161205
  5. SOMAC [Concomitant]
     Active Substance: PANTOPRAZOLE SODIUM
     Indication: PROPHYLAXIS AGAINST GASTROINTESTINAL ULCER
     Dosage: 40 MILLIGRAM DAILY;
     Route: 048
     Dates: start: 20161205
  6. VITAMIN B12 DEPOT HEVERT [Concomitant]
     Indication: VITAMIN B12 DEFICIENCY
     Dosage: EVERY THREE MONTHS
     Route: 030
     Dates: start: 201505
  7. LEVACT [Suspect]
     Active Substance: BENDAMUSTINE HYDROCHLORIDE
     Indication: PLASMA CELL MYELOMA
     Dosage: (LEVACT GIVEN IN 1ST AND 2ND CYCLE)
     Route: 041
     Dates: start: 20170117, end: 20170222
  8. BENDAMUSTINE [Suspect]
     Active Substance: BENDAMUSTINE
     Indication: PLASMA CELL MYELOMA
     Dosage: (BENDAMUSTINE ACCORD FOR 3RD AND 4TH CYCLE)
     Route: 041
     Dates: end: 20170511
  9. TESTOGEL [Concomitant]
     Active Substance: TESTOSTERONE
     Indication: HYPOGONADISM
     Route: 061
     Dates: start: 201512, end: 20170308
  10. ZOMETA [Concomitant]
     Active Substance: ZOLEDRONIC ACID
     Indication: OSTEOPOROSIS PROPHYLAXIS
     Dosage: (PAUSED DURING STEM CELL TRANSPLANTATION 2014. GIVEN ONCE MONTHLY BEFORE JAN2017)
     Route: 042
     Dates: start: 20140826
  11. NYCOPLUS FOLSYRE [Concomitant]
     Indication: FOLATE DEFICIENCY
     Dosage: 400 MICROGRAM DAILY;
     Route: 048
     Dates: start: 20161103
  12. NYCOPLUS MAGNESIUM [Concomitant]
     Indication: HYPOMAGNESAEMIA
     Dosage: 120 MILLIGRAM DAILY;
     Route: 048
     Dates: start: 20170327
  13. PHOSPHATE-SANDOZ [Concomitant]
     Active Substance: SODIUM PHOSPHATE, MONOBASIC, ANHYDROUS
     Indication: HYPOPHOSPHATAEMIA
     Dosage: 1000 MILLIGRAM DAILY;
     Route: 048
     Dates: start: 201603

REACTIONS (3)
  - Thrombophlebitis [Recovered/Resolved]
  - Hypersensitivity [Unknown]
  - Thrombophlebitis [Recovered/Resolved]

NARRATIVE: CASE EVENT DATE: 20170307
